FAERS Safety Report 6331012-9 (Version None)
Quarter: 2009Q3

REPORT INFORMATION
  Report Type: 
  Country: None (occurrence: None)
  Receive Date: 20090827
  Receipt Date: 20090826
  Transmission Date: 20100115
  Serious: Yes (Other)
  Sender: FDA-Public Use
  Company Number: A0794316A

PATIENT
  Age: 68 Year
  Sex: Female

DRUGS (15)
  1. RYTHMOL SR [Suspect]
     Indication: ATRIAL FIBRILLATION
     Dosage: 325MG TWICE PER DAY
     Route: 048
     Dates: start: 20090611, end: 20090615
  2. POTASSIUM CHLORIDE [Concomitant]
     Dosage: 2TAB PER DAY
  3. LASIX [Concomitant]
     Dosage: 80MG FOUR TIMES PER DAY
  4. CRESTOR [Concomitant]
     Dosage: 40MG PER DAY
  5. COREG [Concomitant]
     Dosage: 12.5MG TWICE PER DAY
  6. NEXIUM [Concomitant]
     Dosage: 40MG PER DAY
  7. ALOPURINOL [Concomitant]
     Dosage: 300MG PER DAY
  8. PLAVIX [Concomitant]
     Dosage: 75MG PER DAY
  9. SPIRONOLACTONE [Concomitant]
     Dosage: 425MG PER DAY
  10. THYROID TAB [Concomitant]
     Dosage: 65MG PER DAY
  11. VITAMIN B-12 [Concomitant]
  12. MULTIPLE VITAMINS [Concomitant]
  13. MINERAL TAB [Concomitant]
  14. IMDUR [Concomitant]
  15. PRANDIN [Concomitant]

REACTIONS (8)
  - DRUG INTERACTION [None]
  - DYSPHONIA [None]
  - ERYTHEMA [None]
  - FLUID RETENTION [None]
  - HYPERSENSITIVITY [None]
  - LIP SWELLING [None]
  - PRURITUS GENERALISED [None]
  - VISION BLURRED [None]
